FAERS Safety Report 9160645 (Version 1)
Quarter: 2013Q1

REPORT INFORMATION
  Report Type: Report from Study
  Country: JP (occurrence: JP)
  Receive Date: 20130313
  Receipt Date: 20130313
  Transmission Date: 20140127
  Serious: Yes (Other)
  Sender: FDA-Public Use
  Company Number: JP-UCBSA-080468

PATIENT
  Age: 28 Year
  Sex: Male

DRUGS (10)
  1. E KEPPRA [Suspect]
     Indication: GRAND MAL CONVULSION
     Route: 048
     Dates: start: 20110324, end: 20110403
  2. E KEPPRA [Suspect]
     Indication: GRAND MAL CONVULSION
     Route: 048
     Dates: start: 20110303, end: 20110323
  3. E KEPPRA [Suspect]
     Indication: GRAND MAL CONVULSION
     Route: 048
     Dates: start: 20110217, end: 20110302
  4. ALEVIATIN [Concomitant]
     Indication: GRAND MAL CONVULSION
     Dosage: DAILY DOSE: 100 MG
     Route: 048
  5. GABAPEN [Concomitant]
     Indication: GRAND MAL CONVULSION
     Dosage: DAILY DOSE: 200 MG
     Route: 048
     Dates: start: 20110217
  6. HYDANTOL [Concomitant]
     Indication: GRAND MAL CONVULSION
     Dosage: DAILY DOSE: 25 MG
     Route: 048
     Dates: start: 20110217, end: 20110411
  7. HYDANTOL [Concomitant]
     Indication: GRAND MAL CONVULSION
     Dosage: DAILY DOSE: 37.5
     Route: 048
     Dates: start: 20110412, end: 20110425
  8. HYDANTOL [Concomitant]
     Indication: GRAND MAL CONVULSION
     Dosage: DAILY DOSE: 50 MG
     Route: 048
     Dates: start: 20110426
  9. AZUNOL [Concomitant]
     Dosage: UNKNOWN DOSE
     Route: 062
  10. ALLELOCK [Concomitant]
     Dosage: DAILY DOSE: 10 MG
     Route: 048

REACTIONS (2)
  - Epilepsy [Recovered/Resolved]
  - Status epilepticus [Recovered/Resolved]
